FAERS Safety Report 5614409-1 (Version None)
Quarter: 2008Q1

REPORT INFORMATION
  Report Type: 
  Country: None (occurrence: None)
  Receive Date: 20080205
  Receipt Date: 20080128
  Transmission Date: 20080703
  Serious: Yes (Disabling)
  Sender: FDA-Public Use
  Company Number: BG-PFIZER INC-2008008755

PATIENT
  Sex: Male
  Weight: 7 kg

DRUGS (11)
  1. GENOTROPIN [Suspect]
     Indication: GROWTH RETARDATION
     Route: 058
     Dates: start: 20070501, end: 20080118
  2. NEORECORMON ^ROCHE^ [Concomitant]
     Route: 058
  3. MALTOFER [Concomitant]
     Route: 048
  4. ROCALTROL [Concomitant]
     Route: 048
  5. CALCIUM GLUCONATE [Concomitant]
     Route: 048
  6. KETOSTERIL [Concomitant]
     Route: 048
  7. L-THYROXIN [Concomitant]
     Route: 048
  8. SORBISTERIT-CALCIUM [Concomitant]
     Route: 048
  9. NIFEDIPINE [Concomitant]
     Route: 048
     Dates: start: 20070601, end: 20080117
  10. ENALAPRIL MALEATE [Concomitant]
     Route: 048
     Dates: start: 20050901, end: 20070117
  11. VENOFER [Concomitant]
     Route: 042

REACTIONS (2)
  - BLINDNESS [None]
  - PUPILLARY REFLEX IMPAIRED [None]
